FAERS Safety Report 9838971 (Version 2)
Quarter: 2016Q3

REPORT INFORMATION
  Report Type: Spontaneous
  Country: DK (occurrence: DK)
  Receive Date: 20140123
  Receipt Date: 20160809
  Transmission Date: 20161109
  Serious: Yes (Hospitalization)
  Sender: FDA-Public Use
  Company Number: DK-GE HEALTHCARE MEDICAL DIAGNOSTICS-VISP-E2B_00000048

PATIENT
  Age: 56 Year
  Sex: Female

DRUGS (9)
  1. VISIPAQUE [Suspect]
     Active Substance: IODIXANOL
     Indication: MALAISE
     Dosage: DOSE NOT REPORTED
     Route: 042
     Dates: start: 20130910, end: 20130910
  2. EXTAVIA [Concomitant]
     Active Substance: INTERFERON BETA-1B
  3. CIPRALEX [Concomitant]
     Active Substance: ESCITALOPRAM OXALATE
  4. VIBEDEN [Concomitant]
  5. OXYNORM [Concomitant]
     Active Substance: OXYCODONE HYDROCHLORIDE
  6. VISIPAQUE [Suspect]
     Active Substance: IODIXANOL
     Indication: VERTIGO
  7. TRILEPTAL [Concomitant]
     Active Substance: OXCARBAZEPINE
     Dosage: 300+0+0+600 MG
  8. LANSOPRAZOL [Concomitant]
     Active Substance: LANSOPRAZOLE
  9. VISIPAQUE [Suspect]
     Active Substance: IODIXANOL
     Indication: DIAGNOSTIC PROCEDURE

REACTIONS (16)
  - Dermatitis bullous [Recovered/Resolved]
  - Tension headache [Recovering/Resolving]
  - Pain in extremity [Recovering/Resolving]
  - Chest discomfort [Recovering/Resolving]
  - Palpitations [Recovering/Resolving]
  - Sensory disturbance [Unknown]
  - Venous injury [Unknown]
  - Face oedema [Recovered/Resolved]
  - Infusion site phlebitis [Unknown]
  - Hypersensitivity [Recovered/Resolved]
  - Nausea [Recovered/Resolved]
  - Pruritus [Recovered/Resolved]
  - Malaise [Recovering/Resolving]
  - Mobility decreased [Unknown]
  - Infusion site hypertrophy [Unknown]
  - Rash generalised [Recovered/Resolved]

NARRATIVE: CASE EVENT DATE: 20130910
